FAERS Safety Report 4470161-7 (Version None)
Quarter: 2004Q3

REPORT INFORMATION
  Report Type: 
  Country: None (occurrence: None)
  Receive Date: 20040910
  Receipt Date: 20040729
  Transmission Date: 20050211
  Serious: No
  Sender: FDA-Public Use
  Company Number: 2004226780US

PATIENT
  Age: 67 Year
  Sex: Female
  Weight: 83.9 kg

DRUGS (3)
  1. BEXTRA [Suspect]
     Indication: ARTHRITIS
     Dosage: 20 MG, QD
     Dates: start: 20040601
  2. LIPITOR [Concomitant]
  3. ARTHROTEC [Concomitant]

REACTIONS (5)
  - ABDOMINAL PAIN UPPER [None]
  - ABNORMAL SENSATION IN EYE [None]
  - ARTHRITIS [None]
  - DRUG INEFFECTIVE [None]
  - HEADACHE [None]
